FAERS Safety Report 8566296-X (Version None)
Quarter: 2012Q3

REPORT INFORMATION
  Report Type: 
  Country: None (occurrence: None)
  Receive Date: 20120803
  Receipt Date: 20111014
  Transmission Date: 20120928
  Serious: No
  Sender: FDA-Public Use
  Company Number: US-ABBOTT-11P-163-0865238-00

PATIENT
  Sex: Male
  Weight: 99.88 kg

DRUGS (8)
  1. NIASPAN [Suspect]
     Dates: start: 20110101, end: 20110101
  2. ASPIRIN [Concomitant]
     Indication: PRODUCT USED FOR UNKNOWN INDICATION
  3. TEKTURNA [Concomitant]
     Indication: HYPERTENSION
  4. NIASPAN [Suspect]
     Dates: start: 20110101, end: 20110101
  5. ATENOLOL [Concomitant]
     Indication: HYPERTENSION
  6. LIPITOR [Concomitant]
     Indication: PRODUCT USED FOR UNKNOWN INDICATION
  7. NIASPAN [Suspect]
     Indication: BLOOD TRIGLYCERIDES INCREASED
     Dates: start: 20110101, end: 20110101
  8. ALLOPURINOL [Concomitant]
     Indication: BLOOD URIC ACID

REACTIONS (2)
  - PARAESTHESIA [None]
  - HYPOAESTHESIA [None]
